FAERS Safety Report 5828197-7 (Version None)
Quarter: 2008Q3

REPORT INFORMATION
  Report Type: 
  Country: None (occurrence: None)
  Receive Date: 20080731
  Receipt Date: 20080724
  Transmission Date: 20090109
  Serious: No
  Sender: FDA-Public Use
  Company Number: CA-ASTRAZENECA-2008UW14762

PATIENT
  Age: 18905 Day
  Sex: Female
  Weight: 54.9 kg

DRUGS (6)
  1. CRESTOR [Suspect]
     Indication: HYPERCHOLESTEROLAEMIA
     Route: 048
     Dates: start: 20080220
  2. MELOXICAM [Concomitant]
     Indication: ARTHRITIS
     Route: 048
  3. DOVODET [Concomitant]
     Indication: PSORIASIS
     Route: 061
     Dates: start: 20020101
  4. FISH OIL [Concomitant]
     Indication: ROUTINE HEALTH MAINTENANCE
     Dosage: 1 TEASPOON DAILY
     Route: 048
     Dates: start: 20060101
  5. GARLIC SUPPLEMENY SUPER GARLIC 6000 [Concomitant]
     Indication: ROUTINE HEALTH MAINTENANCE
     Dosage: 1 TABLET DAILY
     Route: 048
     Dates: start: 20060101
  6. ASPIRIN [Concomitant]
     Indication: ANTICOAGULANT THERAPY
     Route: 048
     Dates: start: 20060101

REACTIONS (2)
  - BLOOD CREATINE PHOSPHOKINASE INCREASED [None]
  - CONDITION AGGRAVATED [None]
